FAERS Safety Report 7198980-7 (Version None)
Quarter: 2010Q4

REPORT INFORMATION
  Report Type: 
  Country: None (occurrence: None)
  Receive Date: 20101228
  Receipt Date: 20101217
  Transmission Date: 20110411
  Serious: Yes (Other)
  Sender: FDA-Public Use
  Company Number: US-BIOGENIDEC-2010BI044524

PATIENT
  Age: 50 Year
  Sex: Female

DRUGS (5)
  1. TYSABRI [Suspect]
     Indication: MULTIPLE SCLEROSIS
     Route: 042
     Dates: start: 20100219
  2. KLONOPIN [Concomitant]
     Indication: CONVULSION
  3. KLONOPIN [Concomitant]
     Indication: DYSKINESIA
  4. VIMPAT [Concomitant]
     Indication: CONVULSION
  5. VIMPAT [Concomitant]
     Indication: DYSKINESIA

REACTIONS (2)
  - CONVULSION [None]
  - DENTAL CARIES [None]
